FAERS Safety Report 6199397-4 (Version None)
Quarter: 2009Q2

REPORT INFORMATION
  Report Type: 
  Country: None (occurrence: None)
  Receive Date: 20090522
  Receipt Date: 20090512
  Transmission Date: 20091009
  Serious: Yes (Life-Threatening, Hospitalization)
  Sender: FDA-Public Use
  Company Number: US-PFIZER INC-2006016731

PATIENT
  Sex: Female
  Weight: 55.79 kg

DRUGS (14)
  1. SUNITINIB MALATE [Suspect]
     Indication: METASTATIC RENAL CELL CARCINOMA
     Dosage: 50 MG, 1X/DAY
     Route: 048
     Dates: start: 20060119, end: 20060120
  2. SUNITINIB MALATE [Suspect]
     Dosage: 50 MG, 1X/DAY
     Route: 048
     Dates: start: 20060101, end: 20060201
  3. SUNITINIB MALATE [Suspect]
     Dosage: 50 MG, 1X/DAY
     Route: 048
     Dates: start: 20060216, end: 20060302
  4. TYLENOL [Concomitant]
     Route: 048
     Dates: start: 20051215
  5. TUSSIONEX [Concomitant]
     Route: 048
     Dates: start: 20051229
  6. NORVASC [Concomitant]
     Route: 048
     Dates: start: 20010101
  7. LIPITOR [Concomitant]
     Route: 048
     Dates: start: 19950101
  8. COMPAZINE [Concomitant]
     Route: 048
     Dates: start: 20060112
  9. ZOMETA [Concomitant]
     Route: 042
     Dates: start: 20060106
  10. HYDROCHLOROTHIAZIDE [Concomitant]
     Route: 048
     Dates: start: 20060112
  11. PREDNISONE [Concomitant]
     Route: 048
     Dates: start: 20060120
  12. TRAMADOL HCL [Concomitant]
     Route: 048
     Dates: start: 20060105
  13. IMODIUM A-D [Concomitant]
     Route: 048
     Dates: start: 20060101
  14. OXYGEN [Concomitant]
     Route: 055
     Dates: start: 20051201

REACTIONS (2)
  - RESPIRATORY DISTRESS [None]
  - VOMITING [None]
